FAERS Safety Report 22032664 (Version 1)
Quarter: 2023Q1

REPORT INFORMATION
  Report Type: Spontaneous
  Country: DE (occurrence: DE)
  Receive Date: 20230224
  Receipt Date: 20230224
  Transmission Date: 20230418
  Serious: Yes (Other)
  Sender: FDA-Public Use
  Company Number: DE-Desitin-2023-00330

PATIENT
  Age: 14 Year
  Sex: Female

DRUGS (3)
  1. LAMOTRIGINE [Interacting]
     Active Substance: LAMOTRIGINE
     Indication: Epilepsy congenital
     Dosage: UNK
     Route: 065
     Dates: start: 201812
  2. MEDROXYPROGESTERONE [Interacting]
     Active Substance: MEDROXYPROGESTERONE
     Indication: Contraception
     Dosage: 150 MILLIGRAM, EVERY 3 MONTHS
     Route: 065
     Dates: start: 202006
  3. VALPROIC ACID [Concomitant]
     Active Substance: VALPROIC ACID
     Indication: Epilepsy congenital
     Dosage: 150 MILLIGRAM, ONCE A DAY
     Route: 065

REACTIONS (3)
  - Epilepsy [Recovering/Resolving]
  - Anticonvulsant drug level decreased [Unknown]
  - Drug interaction [Unknown]
